FAERS Safety Report 16112467 (Version 3)
Quarter: 2019Q4

REPORT INFORMATION
  Report Type: Report from Study
  Country: JP (occurrence: JP)
  Receive Date: 20190325
  Receipt Date: 20191206
  Transmission Date: 20200122
  Serious: Yes (Life-Threatening, Other)
  Sender: FDA-Public Use
  Company Number: JP-ACTELION-A-CH2018-169585

PATIENT
  Age: 12 Year
  Sex: Female
  Weight: 26.4 kg

DRUGS (19)
  1. UPTRAVI [Suspect]
     Active Substance: SELEXIPAG
     Dosage: 0.5 MG, BID
     Route: 048
     Dates: start: 20171108, end: 20171121
  2. UPTRAVI [Suspect]
     Active Substance: SELEXIPAG
     Dosage: 1.2 MG, BID
     Route: 048
     Dates: start: 20180215, end: 20180221
  3. OPSUMIT [Suspect]
     Active Substance: MACITENTAN
     Dosage: 10 MG, QD
     Route: 048
     Dates: start: 20180913
  4. OXYGEN. [Concomitant]
     Active Substance: OXYGEN
  5. UPTRAVI [Suspect]
     Active Substance: SELEXIPAG
     Dosage: 0.8 MG, BID
     Route: 048
     Dates: start: 20171214, end: 20180116
  6. OPSUMIT [Suspect]
     Active Substance: MACITENTAN
     Indication: PULMONARY ARTERIAL HYPERTENSION
     Dosage: 5 MG, QD
     Route: 048
     Dates: start: 20180816, end: 20181227
  7. UPTRAVI [Suspect]
     Active Substance: SELEXIPAG
     Indication: PULMONARY ARTERIAL HYPERTENSION
     Dosage: 0.1 MG, BID
     Route: 048
     Dates: start: 20170810, end: 20170817
  8. VOLIBRIS [Concomitant]
     Active Substance: AMBRISENTAN
     Indication: PULMONARY ARTERIAL HYPERTENSION
     Dosage: 5 MG, QD
     Dates: start: 20150420, end: 20180816
  9. UPTRAVI [Suspect]
     Active Substance: SELEXIPAG
     Dosage: 0.2 MG, BID
     Route: 048
     Dates: start: 20170818, end: 20170829
  10. OPSUMIT [Suspect]
     Active Substance: MACITENTAN
     Dosage: 7.5 MG, QD
     Route: 048
     Dates: start: 20181228
  11. ADCIRCA [Concomitant]
     Active Substance: TADALAFIL
     Indication: PULMONARY ARTERIAL HYPERTENSION
     Dosage: 10 - 30 MG, QD
     Dates: start: 20110908
  12. WARFARIN [Concomitant]
     Active Substance: WARFARIN
     Dosage: 2.75 MG, QD
     Dates: start: 20110602
  13. BISOPROLOL [Concomitant]
     Active Substance: BISOPROLOL
     Indication: TACHYCARDIA
     Dosage: 0.625 MG, QD
     Dates: start: 20180914
  14. UPTRAVI [Suspect]
     Active Substance: SELEXIPAG
     Dosage: 0.3 MG, BID
     Route: 048
     Dates: start: 20170830, end: 20170910
  15. UPTRAVI [Suspect]
     Active Substance: SELEXIPAG
     Dosage: 0.6 MG, BID
     Route: 048
     Dates: start: 20171122, end: 20171213
  16. UPTRAVI [Suspect]
     Active Substance: SELEXIPAG
     Dosage: 1 MG, BID
     Route: 048
     Dates: start: 20180117, end: 20180218
  17. POTASSIUM IODIDE. [Concomitant]
     Active Substance: POTASSIUM IODIDE
     Dosage: 50 MG, QD
     Dates: start: 20180914, end: 20180927
  18. UPTRAVI [Suspect]
     Active Substance: SELEXIPAG
     Dosage: 0.4 MG, BID
     Route: 048
     Dates: start: 20170911, end: 20171107
  19. UPTRAVI [Suspect]
     Active Substance: SELEXIPAG
     Dosage: 1 MG, BID
     Route: 048
     Dates: start: 20180221

REACTIONS (18)
  - Blood thyroid stimulating hormone decreased [Recovering/Resolving]
  - Nausea [Recovered/Resolved]
  - Blood thyroid stimulating hormone increased [Recovering/Resolving]
  - Nasal congestion [Unknown]
  - Heart rate increased [Recovering/Resolving]
  - Tachycardia [Recovering/Resolving]
  - Hepatic function abnormal [Recovered/Resolved]
  - Alanine aminotransferase increased [Recovered/Resolved]
  - Basedow^s disease [Recovering/Resolving]
  - Anti-thyroid antibody positive [Recovering/Resolving]
  - Feeling hot [Recovering/Resolving]
  - Hyperthyroidism [Recovering/Resolving]
  - Aspartate aminotransferase increased [Recovered/Resolved]
  - Fatigue [Recovering/Resolving]
  - Gamma-glutamyltransferase increased [Recovered/Resolved]
  - Epistaxis [Unknown]
  - Swelling [Recovering/Resolving]
  - Cervix enlargement [Recovering/Resolving]

NARRATIVE: CASE EVENT DATE: 20180219
